FAERS Safety Report 11861668 (Version 2)
Quarter: 2016Q1

REPORT INFORMATION
  Report Type: Spontaneous
  Country: US (occurrence: US)
  Receive Date: 20151222
  Receipt Date: 20160225
  Transmission Date: 20160526
  Serious: Yes (Other)
  Sender: FDA-Public Use
  Company Number: US-BAYER-2015-493207

PATIENT
  Sex: Male

DRUGS (1)
  1. AFRIN ORIGINAL [Suspect]
     Active Substance: OXYMETAZOLINE HYDROCHLORIDE
     Indication: EPISTAXIS
     Dosage: BOTTLE COUNT 5OZ(15ML)

REACTIONS (2)
  - Product use issue [None]
  - Drug dependence [None]

NARRATIVE: CASE EVENT DATE: 1995
